FAERS Safety Report 10087027 (Version 11)
Quarter: 2017Q1

REPORT INFORMATION
  Report Type: Spontaneous
  Country: US (occurrence: US)
  Receive Date: 20140418
  Receipt Date: 20170329
  Transmission Date: 20170428
  Serious: Yes (Hospitalization, Other)
  Sender: FDA-Public Use
  Company Number: US-009507513-1202USA01119

PATIENT
  Sex: Male
  Weight: 77.98 kg

DRUGS (4)
  1. PENTASA [Concomitant]
     Active Substance: MESALAMINE
     Indication: CROHN^S DISEASE
     Dosage: UNK, UNKNOWN
     Route: 065
     Dates: start: 2000, end: 2003
  2. SULFASALAZINE. [Concomitant]
     Active Substance: SULFASALAZINE
     Indication: CROHN^S DISEASE
     Dosage: UNK, UNKNOWN
     Route: 065
     Dates: start: 1999, end: 2014
  3. PREDNISONE. [Concomitant]
     Active Substance: PREDNISONE
     Indication: CROHN^S DISEASE
     Dosage: UNK, UNKNOWN
     Route: 065
     Dates: start: 1999, end: 2013
  4. PROPECIA [Suspect]
     Active Substance: FINASTERIDE
     Indication: ALOPECIA
     Dosage: 1 MG, QD
     Route: 048
     Dates: start: 200001, end: 201105

REACTIONS (43)
  - Intestinal resection [Unknown]
  - Drug interaction [Unknown]
  - Arterial insufficiency [Unknown]
  - Penile vascular disorder [Unknown]
  - Hydrocele operation [Unknown]
  - Anaemia [Unknown]
  - Hypothyroidism [Unknown]
  - Semen volume decreased [Unknown]
  - Sexual dysfunction [Unknown]
  - Testicular pain [Unknown]
  - Nasal operation [Unknown]
  - Dizziness [Unknown]
  - Premature ejaculation [Unknown]
  - Testicular failure [Unknown]
  - Irritable bowel syndrome [Unknown]
  - Crohn^s disease [Unknown]
  - Organic erectile dysfunction [Not Recovered/Not Resolved]
  - Anxiety [Not Recovered/Not Resolved]
  - Penis injury [Unknown]
  - Lipoma [Unknown]
  - Hypogonadism [Unknown]
  - Allergy to animal [Unknown]
  - Hydrocele [Not Recovered/Not Resolved]
  - Haemorrhoids [Unknown]
  - Vasectomy [Unknown]
  - Fracture of penis [Unknown]
  - Intestinal resection [Unknown]
  - Nasal septum deviation [Unknown]
  - Hypothalamo-pituitary disorder [Unknown]
  - Infection [Unknown]
  - Penile swelling [Unknown]
  - Hydrocele [Unknown]
  - Depression [Not Recovered/Not Resolved]
  - Libido decreased [Not Recovered/Not Resolved]
  - Adverse event [Not Recovered/Not Resolved]
  - Headache [Unknown]
  - Intestinal haemorrhage [Unknown]
  - Psychiatric symptom [Not Recovered/Not Resolved]
  - Constipation [Unknown]
  - Chronic fatigue syndrome [Not Recovered/Not Resolved]
  - Painful ejaculation [Unknown]
  - Prostatomegaly [Unknown]
  - Haematoma [Unknown]

NARRATIVE: CASE EVENT DATE: 2000
